FAERS Safety Report 4663336-5 (Version None)
Quarter: 2005Q2

REPORT INFORMATION
  Report Type: 
  Country: None (occurrence: None)
  Receive Date: 20050517
  Receipt Date: 20050411
  Transmission Date: 20051028
  Serious: Yes (Death)
  Sender: FDA-Public Use
  Company Number: 200511090JP

PATIENT
  Age: 74 Year
  Sex: Male
  Weight: 54 kg

DRUGS (4)
  1. TAXOTERE [Suspect]
     Indication: RECURRENT CANCER
     Route: 041
     Dates: start: 20050407, end: 20050407
  2. ELECTROLYTE SOLUTIONS [Concomitant]
     Route: 042
     Dates: start: 20050407, end: 20050407
  3. DECADRON [Concomitant]
     Route: 042
     Dates: start: 20050407, end: 20050407
  4. RADIOTHERAPY [Concomitant]
     Dosage: DOSE: 60GY
     Dates: start: 19970224, end: 19970331

REACTIONS (3)
  - AORTIC ANEURYSM RUPTURE [None]
  - CARDIAC ARREST [None]
  - SHOCK HAEMORRHAGIC [None]
